FAERS Safety Report 23943490 (Version 2)
Quarter: 2024Q2

REPORT INFORMATION
  Report Type: Report from Study
  Country: GB (occurrence: GB)
  Receive Date: 20240605
  Receipt Date: 20240618
  Transmission Date: 20240716
  Serious: Yes (Hospitalization, Other)
  Sender: FDA-Public Use
  Company Number: GB-ABBVIE-5549419

PATIENT
  Age: 65 Year
  Sex: Female

DRUGS (13)
  1. CARBIDOPA\LEVODOPA [Suspect]
     Active Substance: CARBIDOPA\LEVODOPA
     Indication: Parkinson^s disease
     Dosage: MD: 6.0 MLS, CR: 0.7 MLS/HR, ED: 0.5MLS, 20MG/5MG
     Route: 050
     Dates: start: 20231213, end: 20231214
  2. CARBIDOPA\LEVODOPA [Suspect]
     Active Substance: CARBIDOPA\LEVODOPA
     Dosage: 20MGS/5MGS MD 6.8, CR 1.4, ED 0.5
     Route: 050
     Dates: start: 20240222, end: 20240222
  3. CARBIDOPA\LEVODOPA [Suspect]
     Active Substance: CARBIDOPA\LEVODOPA
     Dosage: MD: 6.8, CR: 1.6, ED: 0.6?LAST ADMIN DATE 2024
     Route: 050
     Dates: start: 20240228
  4. CARBIDOPA\LEVODOPA [Suspect]
     Active Substance: CARBIDOPA\LEVODOPA
     Dosage: MD: 6.8 MLS  CR:  1.7 ML/HR   ED:0.6 MLS?FIRST ADMIN DATE- 2024
     Route: 050
     Dates: start: 20240222, end: 20240228
  5. CARBIDOPA\LEVODOPA [Suspect]
     Active Substance: CARBIDOPA\LEVODOPA
     Dosage: MD: 6.8 MLS  CR:  1.7 ML/HR   ED:0.6 MLS
     Route: 050
     Dates: start: 2024
  6. BENSERAZIDE HYDROCHLORIDE\LEVODOPA [Concomitant]
     Active Substance: BENSERAZIDE HYDROCHLORIDE\LEVODOPA
     Indication: Parkinson^s disease
     Dosage: 1 AT 2000?25/100MGS
     Route: 048
  7. BENSERAZIDE HYDROCHLORIDE\LEVODOPA [Concomitant]
     Active Substance: BENSERAZIDE HYDROCHLORIDE\LEVODOPA
     Indication: Parkinson^s disease
  8. MORPHINE [Concomitant]
     Active Substance: MORPHINE
     Indication: Pain
     Route: 030
     Dates: start: 202312
  9. ACETAMINOPHEN [Concomitant]
     Active Substance: ACETAMINOPHEN
     Indication: Pain
     Route: 042
     Dates: start: 202312
  10. MORPHINE SULFATE [Concomitant]
     Active Substance: MORPHINE SULFATE
     Indication: Pain
     Dates: start: 202312
  11. SINEMET [Concomitant]
     Active Substance: CARBIDOPA\LEVODOPA
     Indication: Product used for unknown indication
     Route: 048
  12. FLUDROCORTISONE [Concomitant]
     Active Substance: FLUDROCORTISONE
     Indication: Product used for unknown indication
  13. ROTIGOTINE [Concomitant]
     Active Substance: ROTIGOTINE
     Indication: Product used for unknown indication
     Dosage: 4 MG DAY AND NIGHT

REACTIONS (44)
  - Peritonitis [Not Recovered/Not Resolved]
  - Abdominal pain [Not Recovered/Not Resolved]
  - Device issue [Not Recovered/Not Resolved]
  - Fall [Unknown]
  - Constipation [Recovered/Resolved]
  - Musculoskeletal disorder [Unknown]
  - Feeding disorder [Unknown]
  - Tooth extraction [Unknown]
  - Discomfort [Unknown]
  - Urinary tract infection [Recovered/Resolved]
  - Stoma site reaction [Unknown]
  - Confusional state [Recovering/Resolving]
  - Crying [Not Recovered/Not Resolved]
  - Cognitive disorder [Not Recovered/Not Resolved]
  - Coma [Unknown]
  - Decreased interest [Unknown]
  - Device occlusion [Unknown]
  - Embedded device [Unknown]
  - Urinary tract infection [Not Recovered/Not Resolved]
  - Blood pressure abnormal [Recovered/Resolved]
  - Therapeutic product effect incomplete [Unknown]
  - Sedation [Unknown]
  - Musculoskeletal stiffness [Unknown]
  - Joint stiffness [Unknown]
  - Underdose [Not Recovered/Not Resolved]
  - Speech disorder [Not Recovered/Not Resolved]
  - Diarrhoea [Recovered/Resolved]
  - Unevaluable event [Not Recovered/Not Resolved]
  - Hypertension [Unknown]
  - Aphasia [Unknown]
  - On and off phenomenon [Not Recovered/Not Resolved]
  - Mobility decreased [Recovering/Resolving]
  - Fatigue [Recovering/Resolving]
  - Dyskinesia [Unknown]
  - Movement disorder [Unknown]
  - Bradykinesia [Unknown]
  - General symptom [Unknown]
  - Communication disorder [Unknown]
  - Weight bearing difficulty [Unknown]
  - COVID-19 [Unknown]
  - Constipation [Unknown]
  - Memory impairment [Unknown]
  - Device placement issue [Unknown]
  - Muscle rigidity [Not Recovered/Not Resolved]

NARRATIVE: CASE EVENT DATE: 20231213
